FAERS Safety Report 5717671-X (Version None)
Quarter: 2008Q2

REPORT INFORMATION
  Report Type: 
  Country: None (occurrence: None)
  Receive Date: 20080425
  Receipt Date: 20080421
  Transmission Date: 20081010
  Serious: Yes (Death, Hospitalization, Other)
  Sender: FDA-Public Use
  Company Number: IT-BAYER-200711064GDS

PATIENT
  Age: 67 Year
  Sex: Male
  Weight: 72 kg

DRUGS (19)
  1. SORAFENIB [Suspect]
     Indication: NON-SMALL CELL LUNG CANCER
     Dosage: TOTAL DAILY DOSE: 800 MG  UNIT DOSE: 200 MG
     Route: 048
     Dates: start: 20070208
  2. SORAFENIB [Suspect]
     Dosage: TOTAL DAILY DOSE: 800 MG  UNIT DOSE: 200 MG
     Route: 048
     Dates: start: 20070118, end: 20070205
  3. SORAFENIB [Suspect]
     Dosage: TOTAL DAILY DOSE: 800 MG  UNIT DOSE: 200 MG
     Route: 048
     Dates: start: 20070227, end: 20070319
  4. CARBOPLATIN [Suspect]
     Indication: NON-SMALL CELL LUNG CANCER
     Route: 042
     Dates: start: 20070207, end: 20070207
  5. CARBOPLATIN [Suspect]
     Route: 042
     Dates: start: 20070117, end: 20070117
  6. PACLITAXEL [Suspect]
     Indication: NON-SMALL CELL LUNG CANCER
     Route: 042
     Dates: start: 20070117, end: 20070117
  7. PACLITAXEL [Suspect]
     Route: 042
     Dates: start: 20070207, end: 20070207
  8. PLAVIX [Concomitant]
     Indication: ILL-DEFINED DISORDER
     Route: 048
  9. ADALAT [Concomitant]
     Indication: HYPERTENSION
     Route: 048
  10. ATENOLOL [Concomitant]
     Indication: HYPERTENSION
     Route: 048
  11. NITROGLYCERIN [Concomitant]
     Indication: DRUG USE FOR UNKNOWN INDICATION
     Route: 062
  12. CIPROFLOXACIN HCL [Concomitant]
     Indication: INFECTION PROPHYLAXIS
     Route: 042
     Dates: start: 20070215
  13. TORVAST [Concomitant]
     Indication: ILL-DEFINED DISORDER
     Route: 048
  14. NOVONORM [Concomitant]
     Indication: TYPE 2 DIABETES MELLITUS
     Route: 048
     Dates: start: 20040101
  15. ANTRA [Concomitant]
     Indication: PROPHYLAXIS
     Route: 048
  16. BENADON [Concomitant]
     Indication: HYPERHOMOCYSTEINAEMIA
     Route: 048
     Dates: start: 20070131
  17. FOLINA [Concomitant]
     Indication: HYPERHOMOCYSTEINAEMIA
     Route: 048
     Dates: start: 20070131
  18. NEUPOGEN [Concomitant]
     Indication: PROPHYLAXIS
     Route: 058
     Dates: start: 20070207, end: 20070207
  19. NEUPOGEN [Concomitant]
     Route: 058
     Dates: start: 20070227, end: 20070227

REACTIONS (4)
  - GENERAL PHYSICAL HEALTH DETERIORATION [None]
  - HYPERCREATININAEMIA [None]
  - NEUTROPENIA [None]
  - THROMBOCYTOPENIA [None]
